FAERS Safety Report 9612330 (Version 2)
Quarter: 2013Q4

REPORT INFORMATION
  Report Type: Spontaneous
  Country: US (occurrence: US)
  Receive Date: 20131010
  Receipt Date: 20131010
  Transmission Date: 20140711
  Serious: No
  Sender: FDA-Public Use
  Company Number: US-ASTELLAS-2013US007616

PATIENT
  Age: 76 Year
  Sex: Female

DRUGS (3)
  1. MYRBETRIQ [Suspect]
     Indication: HYPERTONIC BLADDER
     Dosage: 50 MG, UID/QD
     Route: 048
     Dates: start: 20130614
  2. MYRBETRIQ [Suspect]
     Dosage: 50 MG, UID/QD (2 TABLETS OF 25 MG)
     Route: 048
     Dates: start: 20130422
  3. MYRBETRIQ [Suspect]
     Dosage: 25 MG, UID/QD
     Route: 048

REACTIONS (4)
  - Drug ineffective [Recovering/Resolving]
  - Wrong technique in drug usage process [Unknown]
  - Inappropriate schedule of drug administration [Unknown]
  - Incontinence [Recovering/Resolving]
